APPROVED DRUG PRODUCT: ENALAPRIL MALEATE
Active Ingredient: ENALAPRIL MALEATE
Strength: 1MG/ML
Dosage Form/Route: SOLUTION;ORAL
Application: A216458 | Product #001 | TE Code: AB
Applicant: AUROBINDO PHARMA LTD
Approved: Jan 8, 2024 | RLD: No | RS: No | Type: RX